FAERS Safety Report 9134060 (Version 1)
Quarter: 2013Q1

REPORT INFORMATION
  Report Type: Spontaneous
  Country: US (occurrence: None)
  Receive Date: 20130227
  Receipt Date: 20130227
  Transmission Date: 20140127
  Serious: Yes (Death, Hospitalization)
  Sender: FDA-Public Use
  Company Number: None

PATIENT
  Sex: Male
  Weight: 35.3 kg

DRUGS (6)
  1. DOXORUBICIN HYDROCHLORIDE [Suspect]
  2. L-ASPARAGINASE [Suspect]
  3. METHOTREXATE [Suspect]
  4. PREDNISONE [Suspect]
  5. VINCRISTINE SULFATE [Suspect]
  6. CYTARABINE [Suspect]

REACTIONS (16)
  - Pyrexia [None]
  - Pancytopenia [None]
  - Hyponatraemia [None]
  - Dehydration [None]
  - Periorbital cellulitis [None]
  - Otitis media [None]
  - Cellulitis orbital [None]
  - Pupils unequal [None]
  - Sinusitis [None]
  - Cavernous sinus thrombosis [None]
  - Carotid artery occlusion [None]
  - Cerebral septic infarct [None]
  - Apnoea [None]
  - Brain injury [None]
  - Staphylococcal infection [None]
  - Culture positive [None]
